FAERS Safety Report 11777296 (Version 1)
Quarter: 2015Q4

REPORT INFORMATION
  Report Type: Spontaneous
  Country: US (occurrence: US)
  Receive Date: 20151125
  Receipt Date: 20151125
  Transmission Date: 20160304
  Serious: No
  Sender: FDA-Public Use
  Company Number: US-MALLINCKRODT-T201501760

PATIENT
  Age: 53 Year
  Sex: Male
  Weight: 82 kg

DRUGS (2)
  1. GABLOFEN [Suspect]
     Active Substance: BACLOFEN
     Dosage: 698 ?G, QD
     Route: 037
     Dates: start: 20150624
  2. GABLOFEN [Suspect]
     Active Substance: BACLOFEN
     Indication: MUSCLE SPASTICITY
     Dosage: 698 ?G, QD
     Route: 037
     Dates: start: 20150318

REACTIONS (4)
  - Tremor [Recovered/Resolved]
  - Cholestatic pruritus [Recovered/Resolved]
  - Pruritus [Recovered/Resolved]
  - Cholelithiasis [Recovered/Resolved]

NARRATIVE: CASE EVENT DATE: 20150319
